FAERS Safety Report 5444179-1 (Version None)
Quarter: 2007Q3

REPORT INFORMATION
  Report Type: 
  Country: None (occurrence: None)
  Receive Date: 20070904
  Receipt Date: 20070904
  Transmission Date: 20080115
  Serious: Yes (Other)
  Sender: FDA-Public Use
  Company Number: None

PATIENT
  Age: 57 Year
  Sex: Male
  Weight: 73.9363 kg

DRUGS (8)
  1. GABAPENTIN [Suspect]
     Indication: CENTRAL PAIN SYNDROME
     Dosage: 30MG TID PO
     Route: 048
     Dates: start: 20070813, end: 20070819
  2. GABAPENTIN [Suspect]
     Indication: CENTRAL PAIN SYNDROME
     Dosage: 30MG TID PO
     Route: 048
     Dates: start: 20060601
  3. NAPROSYN [Concomitant]
  4. DICYCLOMINE [Concomitant]
  5. SULAR [Concomitant]
  6. MAXZIDE [Concomitant]
  7. ASPIRIN [Concomitant]
  8. LIPITOR [Concomitant]

REACTIONS (2)
  - HEADACHE [None]
  - PHARMACEUTICAL PRODUCT COMPLAINT [None]
